FAERS Safety Report 9369256 (Version 1)
Quarter: 2013Q2

REPORT INFORMATION
  Report Type: Report from Study
  Country: FR (occurrence: FR)
  Receive Date: 20130626
  Receipt Date: 20130626
  Transmission Date: 20140414
  Serious: Yes (Hospitalization)
  Sender: FDA-Public Use
  Company Number: FR-ROCHE-1240559

PATIENT
  Age: 59 Year
  Sex: Female
  Weight: 57 kg

DRUGS (19)
  1. TOCILIZUMAB [Suspect]
     Indication: RHEUMATOID ARTHRITIS
     Route: 041
     Dates: start: 20110317
  2. TOCILIZUMAB [Suspect]
     Route: 041
     Dates: start: 20110414
  3. TOCILIZUMAB [Suspect]
     Route: 041
     Dates: start: 20110512
  4. TOCILIZUMAB [Suspect]
     Route: 041
     Dates: start: 20110616
  5. TOCILIZUMAB [Suspect]
     Route: 041
     Dates: start: 20110713
  6. TOCILIZUMAB [Suspect]
     Route: 041
     Dates: start: 20110825
  7. TOCILIZUMAB [Suspect]
     Route: 041
     Dates: start: 20110922
  8. TOCILIZUMAB [Suspect]
     Route: 041
     Dates: start: 20111020
  9. TOCILIZUMAB [Suspect]
     Route: 041
     Dates: start: 20111124
  10. TOCILIZUMAB [Suspect]
     Route: 041
     Dates: start: 20120105
  11. TOCILIZUMAB [Suspect]
     Route: 041
     Dates: start: 20120329
  12. TOCILIZUMAB [Suspect]
     Route: 041
     Dates: start: 20120406
  13. TOCILIZUMAB [Suspect]
     Route: 041
     Dates: start: 20120524
  14. TOCILIZUMAB [Suspect]
     Route: 041
     Dates: start: 20120621
  15. TOCILIZUMAB [Suspect]
     Route: 041
     Dates: start: 20120803
  16. TOCILIZUMAB [Suspect]
     Route: 041
     Dates: start: 20120904
  17. CORTANCYL [Concomitant]
     Dosage: DAILY
     Route: 065
  18. BI-PROFENID [Concomitant]
  19. TARDYFERON (FRANCE) [Concomitant]

REACTIONS (3)
  - Arthrodesis [Recovered/Resolved]
  - Thrombocytopenia [Recovered/Resolved]
  - Anaemia [Recovered/Resolved]
